FAERS Safety Report 4686649-X (Version None)
Quarter: 2005Q2

REPORT INFORMATION
  Report Type: 
  Country: None (occurrence: None)
  Receive Date: 20050609
  Receipt Date: 20050601
  Transmission Date: 20051028
  Serious: Yes (Hospitalization)
  Sender: FDA-Public Use
  Company Number: 2005AP03175

PATIENT
  Age: 29226 Day
  Sex: Female

DRUGS (7)
  1. TENORMIN [Suspect]
     Indication: HYPERTENSION
     Route: 048
     Dates: start: 20050201, end: 20050218
  2. TENORMIN [Suspect]
     Route: 048
     Dates: start: 20050201
  3. LASIX [Concomitant]
     Route: 048
  4. FELODIPINE [Concomitant]
     Route: 048
  5. ZYLORIC [Concomitant]
     Route: 048
  6. ASPIRIN [Concomitant]
     Route: 048
  7. ENALAPRIL MALEATE [Concomitant]
     Route: 048

REACTIONS (4)
  - BRADYCARDIA [None]
  - HEADACHE [None]
  - NECK PAIN [None]
  - SINUS BRADYCARDIA [None]
